FAERS Safety Report 15138917 (Version 1)
Quarter: 2018Q3

REPORT INFORMATION
  Report Type: Spontaneous
  Country: DK (occurrence: DK)
  Receive Date: 20180713
  Receipt Date: 20180713
  Transmission Date: 20181010
  Serious: Yes (Hospitalization)
  Sender: FDA-Public Use
  Company Number: DK-CONCORDIA PHARMACEUTICALS INC.-E2B_00013747

PATIENT
  Age: 83 Year
  Sex: Female

DRUGS (7)
  1. DIGOXIN. [Suspect]
     Active Substance: DIGOXIN
     Indication: ARRHYTHMIA
     Dosage: STYRKE: 62,5 MICROGRAM. DOSIS: 250 MICROGRAM 1 GANG DAGLIGT
     Route: 047
     Dates: start: 20131113
  2. ANCOZAN [Concomitant]
     Active Substance: LOSARTAN POTASSIUM
     Indication: HYPERTENSION
     Dosage: STYRKE: 12,5 MG
     Route: 048
     Dates: start: 20151127
  3. ONYTEC [Concomitant]
     Indication: ONYCHOMYCOSIS
     Dosage: STYRKE: 80 MG/G. DOSIS:EN PASMORING DAGLIG
     Route: 050
     Dates: start: 20180123
  4. MIMPARA [Concomitant]
     Active Substance: CINACALCET HYDROCHLORIDE
     Indication: HYPERCALCAEMIA
     Dosage: STYRKE: 30 MG
     Route: 048
  5. SIMVASTATIN. [Concomitant]
     Active Substance: SIMVASTATIN
     Indication: HYPERCHOLESTEROLAEMIA
     Dosage: STYRKE: 10 MG
     Route: 048
     Dates: start: 20131021
  6. PRADAXA [Concomitant]
     Active Substance: DABIGATRAN ETEXILATE MESYLATE
     Indication: THROMBOSIS PROPHYLAXIS
     Dosage: STYRKE: 110 MG
     Route: 048
     Dates: start: 20161007
  7. VERALOC RETARD [Concomitant]
     Indication: HYPERTENSION
     Dosage: STYRKE: 200 MG
     Route: 048
     Dates: start: 20110905

REACTIONS (2)
  - Fall [Recovered/Resolved]
  - Dizziness [Recovered/Resolved]

NARRATIVE: CASE EVENT DATE: 201804
